FAERS Safety Report 10169242 (Version 3)
Quarter: 2014Q2

REPORT INFORMATION
  Report Type: Spontaneous
  Country: CA (occurrence: CA)
  Receive Date: 20140513
  Receipt Date: 20140618
  Transmission Date: 20141212
  Serious: Yes (Death)
  Sender: FDA-Public Use
  Company Number: CA-CELGENEUS-028-21880-14032968

PATIENT
  Age: 59 Year
  Sex: Male

DRUGS (10)
  1. REVLIMID [Suspect]
     Indication: PLASMA CELL MYELOMA
     Dosage: 25 MILLIGRAM
     Route: 048
     Dates: start: 20130314
  2. REVLIMID [Suspect]
     Dosage: 10 MILLIGRAM
     Route: 048
     Dates: start: 20130411
  3. REVLIMID [Suspect]
     Dosage: 15 MILLIGRAM
     Route: 048
     Dates: start: 20131205
  4. REVLIMID [Suspect]
     Dosage: 10 MILLIGRAM
     Route: 048
     Dates: start: 20140117
  5. METHADONE [Concomitant]
     Indication: PAIN
     Route: 048
     Dates: start: 20140326
  6. HYDROMORPHONE [Concomitant]
     Indication: PAIN
     Route: 058
     Dates: start: 20140326
  7. PAMIDRONATE [Concomitant]
     Indication: METASTASES TO BONE
     Route: 041
     Dates: start: 2006
  8. FINASTERIDE [Concomitant]
     Indication: PROSTATIC DISORDER
     Route: 048
  9. TAMSULOSIN [Concomitant]
     Indication: PROSTATIC DISORDER
     Route: 048
  10. METHOTRIMEPRAZINE [Concomitant]
     Indication: DELIRIUM
     Route: 058
     Dates: start: 20140429

REACTIONS (3)
  - Plasma cell myeloma [Fatal]
  - Pneumonia [Fatal]
  - Treatment failure [Unknown]
